FAERS Safety Report 6303038-2 (Version None)
Quarter: 2009Q3

REPORT INFORMATION
  Report Type: 
  Country: None (occurrence: None)
  Receive Date: 20090810
  Receipt Date: 20090710
  Transmission Date: 20100115
  Serious: Yes (Hospitalization)
  Sender: FDA-Public Use
  Company Number: FR-ASTRAZENECA-2009CG00321

PATIENT
  Age: 977 Month
  Sex: Female
  Weight: 54 kg

DRUGS (17)
  1. ATACAND [Suspect]
     Route: 048
     Dates: start: 20070101, end: 20081013
  2. RIVOTRIL [Suspect]
     Route: 048
     Dates: start: 20080930
  3. NOZINAN [Suspect]
     Route: 048
     Dates: start: 19780101, end: 20080930
  4. LAROXYL [Suspect]
     Route: 048
     Dates: end: 20080930
  5. LEXOMIL [Suspect]
     Route: 048
     Dates: start: 20070101
  6. EFFERALGAN CODEINE [Suspect]
     Route: 048
     Dates: start: 20070101, end: 20081013
  7. VASTAREL [Suspect]
     Dates: start: 20070101, end: 20081013
  8. SEROPLEX [Suspect]
     Route: 048
     Dates: start: 20080801
  9. SEROPLEX [Suspect]
     Route: 048
  10. SEROPLEX [Suspect]
     Route: 048
     Dates: start: 20080930
  11. SYMBICORT [Concomitant]
     Dates: start: 20070101
  12. OMEPRAZOLE [Concomitant]
     Dates: start: 20070101
  13. SINEMET [Concomitant]
     Route: 048
     Dates: start: 20080930, end: 20081011
  14. SINEMET [Concomitant]
     Route: 048
     Dates: start: 20081113
  15. ACTONEL [Concomitant]
     Dates: start: 20070101
  16. CACIT D3 [Concomitant]
     Dates: start: 20070101
  17. PREVISCAN [Concomitant]
     Dates: start: 20071201

REACTIONS (7)
  - EXTRAPYRAMIDAL DISORDER [None]
  - FALL [None]
  - HAEMATOMA [None]
  - HEAD INJURY [None]
  - HYPOTENSION [None]
  - ORTHOSTATIC HYPOTENSION [None]
  - WOUND [None]
